FAERS Safety Report 25092523 (Version 1)
Quarter: 2025Q1

REPORT INFORMATION
  Report Type: Spontaneous
  Country: US (occurrence: US)
  Receive Date: 20250319
  Receipt Date: 20250319
  Transmission Date: 20250409
  Serious: No
  Sender: SANOFI AVENTIS
  Company Number: US-SA-2025SA079137

PATIENT
  Age: 86 Year
  Sex: Female
  Weight: 68.03 kg

DRUGS (6)
  1. DUPIXENT [Suspect]
     Active Substance: DUPILUMAB
     Indication: Dermatitis atopic
     Dosage: 300 MG, QOW
     Route: 058
     Dates: start: 202403
  2. ALPRAZOLAM [Concomitant]
     Active Substance: ALPRAZOLAM
  3. PANTOPRAZOLE SODIUM [Concomitant]
     Active Substance: PANTOPRAZOLE SODIUM
  4. GABAPENTIN [Concomitant]
     Active Substance: GABAPENTIN
  5. Trazon [Concomitant]
  6. ATENOLOL [Concomitant]
     Active Substance: ATENOLOL

REACTIONS (2)
  - Dry skin [Not Recovered/Not Resolved]
  - Inappropriate schedule of product administration [Unknown]
